FAERS Safety Report 21522351 (Version 1)
Quarter: 2022Q4

REPORT INFORMATION
  Report Type: Spontaneous
  Country: US (occurrence: US)
  Receive Date: 20221028
  Receipt Date: 20221028
  Transmission Date: 20230113
  Serious: No
  Sender: FDA-Public Use
  Company Number: US-Blueprint Medicines Corporation-SP-US-2022-003119

PATIENT
  Sex: Female

DRUGS (1)
  1. AYVAKIT [Suspect]
     Active Substance: AVAPRITINIB
     Indication: Systemic mastocytosis
     Route: 048
     Dates: start: 20221004

REACTIONS (3)
  - Full blood count abnormal [Not Recovered/Not Resolved]
  - Pyrexia [Not Recovered/Not Resolved]
  - Decreased appetite [Not Recovered/Not Resolved]
